FAERS Safety Report 6235159-7 (Version None)
Quarter: 2009Q2

REPORT INFORMATION
  Report Type: 
  Country: None (occurrence: None)
  Receive Date: 20090618
  Receipt Date: 20090606
  Transmission Date: 20091009
  Serious: Yes (Other)
  Sender: FDA-Public Use
  Company Number: FR-PFIZER INC-2008017360

PATIENT
  Age: 72 Year

DRUGS (5)
  1. LYRICA [Suspect]
     Indication: PAIN
     Dosage: 75 MG, 3X/DAY
  2. LYRICA [Suspect]
     Dosage: 75 MG, 2X/DAY
  3. CLONAZEPAM [Concomitant]
     Dosage: UNK
  4. PROZAC [Concomitant]
     Indication: DEPRESSION
     Dosage: UNK
  5. TRAMADOL HYDROCHLORIDE AND ACETAMINOPHEN [Concomitant]
     Dosage: (TRAMADOL 37.5MG)(PARACETAMOL 325MG), 1 TABLET DAILY

REACTIONS (9)
  - ASTHENIA [None]
  - DIZZINESS [None]
  - DRY MOUTH [None]
  - DRY SKIN [None]
  - EOSINOPHILIA [None]
  - HAEMOGLOBIN DECREASED [None]
  - MOUTH HAEMORRHAGE [None]
  - SOMNOLENCE [None]
  - VISION BLURRED [None]
